FAERS Safety Report 17103683 (Version 1)
Quarter: 2019Q4

REPORT INFORMATION
  Report Type: Spontaneous
  Country: US (occurrence: US)
  Receive Date: 20191107
  Receipt Date: 20191107
  Transmission Date: 20200122
  Serious: No
  Sender: FDA-Public Use
  Company Number: None

PATIENT
  Age: 68 Year
  Sex: Male

DRUGS (1)
  1. ERLEADA [Suspect]
     Active Substance: APALUTAMIDE
     Route: 048
     Dates: start: 201909

REACTIONS (5)
  - Fatigue [None]
  - Asthenia [None]
  - Weight increased [None]
  - Nausea [None]
  - Oedema [None]

NARRATIVE: CASE EVENT DATE: 20191107
